FAERS Safety Report 18595239 (Version 1)
Quarter: 2020Q4

REPORT INFORMATION
  Report Type: Spontaneous
  Country: US (occurrence: US)
  Receive Date: 20201209
  Receipt Date: 20201209
  Transmission Date: 20210114
  Serious: Yes (Hospitalization, Disabling, Other)
  Sender: FDA-Public Use
  Company Number: None

PATIENT
  Age: 27 Year
  Sex: Male
  Weight: 116.1 kg

DRUGS (3)
  1. GENVOYA [Concomitant]
     Active Substance: COBICISTAT\ELVITEGRAVIR\EMTRICITABINE\TENOFOVIR ALAFENAMIDE FUMARATE
  2. BIKTARVY [Suspect]
     Active Substance: BICTEGRAVIR SODIUM\EMTRICITABINE\TENOFOVIR ALAFENAMIDE FUMARATE
     Indication: HIV INFECTION
     Dosage: ?          QUANTITY:1 TABLET(S);?
     Route: 048
  3. MULTIVITAMIN [Concomitant]
     Active Substance: VITAMINS

REACTIONS (14)
  - Depression [None]
  - Palpitations [None]
  - Aphasia [None]
  - Anxiety [None]
  - Vitreous floaters [None]
  - Hypoaesthesia [None]
  - Muscle twitching [None]
  - Insomnia [None]
  - Feeling hot [None]
  - Visual impairment [None]
  - Disturbance in attention [None]
  - Emotional disorder [None]
  - Hemiplegic migraine [None]
  - Hallucination, visual [None]
